FAERS Safety Report 10868968 (Version 1)
Quarter: 2015Q1

REPORT INFORMATION
  Report Type: Report from Study
  Country: BR (occurrence: BR)
  Receive Date: 20150225
  Receipt Date: 20150225
  Transmission Date: 20150721
  Serious: Yes (Other)
  Sender: FDA-Public Use
  Company Number: PHHY2014BR149652

PATIENT
  Age: 71 Year
  Sex: Female
  Weight: 57 kg

DRUGS (2)
  1. EXELON [Suspect]
     Active Substance: RIVASTIGMINE TARTRATE
     Indication: MEMORY IMPAIRMENT
     Dosage: 2 DF, QD
     Route: 065
     Dates: start: 201408, end: 201410
  2. NATRILIX [Concomitant]
     Active Substance: INDAPAMIDE
     Indication: HYPERTENSION
     Dosage: 1 DF, QD (IN THE MORNING)
     Route: 065

REACTIONS (9)
  - Dengue fever [Unknown]
  - Weight decreased [Unknown]
  - Back pain [Recovering/Resolving]
  - Abdominal pain upper [Recovered/Resolved]
  - Spinal pain [Unknown]
  - Gastrointestinal disorder [Unknown]
  - Gastric ulcer [Recovered/Resolved]
  - Vomiting [Unknown]
  - Product use issue [Unknown]

NARRATIVE: CASE EVENT DATE: 201408
